FAERS Safety Report 4848699-X (Version None)
Quarter: 2005Q4

REPORT INFORMATION
  Report Type: 
  Country: None (occurrence: None)
  Receive Date: 20051206
  Receipt Date: 20051117
  Transmission Date: 20060501
  Serious: Yes (Life-Threatening, Other)
  Sender: FDA-Public Use
  Company Number: JP200511001782

PATIENT
  Age: 74 Year
  Sex: Male

DRUGS (7)
  1. GEMZAR [Suspect]
     Dosage: 1400 MG, OTHER, INTRAVENOUS
     Route: 042
     Dates: end: 20051114
  2. SEROTONE (AZASETRON HYDROCHLORIDE) AMPOULE [Concomitant]
  3. DECADRON [Concomitant]
  4. AMLODIPINE BESYLATE [Concomitant]
  5. BAYMYCARD (NISOLDIPINE) [Concomitant]
  6. WARFARIN SODIUM [Concomitant]
  7. TICLOPIDINE HCL [Concomitant]

REACTIONS (2)
  - BLOOD PRESSURE DECREASED [None]
  - PNEUMONITIS [None]
